FAERS Safety Report 15736697 (Version 1)
Quarter: 2018Q4

REPORT INFORMATION
  Report Type: Report from Study
  Country: US (occurrence: US)
  Receive Date: 20181218
  Receipt Date: 20181218
  Transmission Date: 20190205
  Serious: Yes (Life-Threatening, Hospitalization)
  Sender: FDA-Public Use
  Company Number: US-MYLANLABS-2018M1092599

PATIENT
  Age: 90 Year
  Sex: Female

DRUGS (1)
  1. METOPROLOL. [Suspect]
     Active Substance: METOPROLOL
     Indication: PRODUCT USED FOR UNKNOWN INDICATION
     Dosage: PRESCRIBED DOSE WAS 75MG
     Route: 048

REACTIONS (5)
  - Hypoxia [Unknown]
  - Extra dose administered [Unknown]
  - Bradycardia [Unknown]
  - Hypotension [Unknown]
  - Cardiac failure acute [Unknown]
